FAERS Safety Report 8312286-1 (Version None)
Quarter: 2012Q2

REPORT INFORMATION
  Report Type: 
  Country: None (occurrence: None)
  Receive Date: 20120425
  Receipt Date: 20120423
  Transmission Date: 20120825
  Serious: Yes (Hospitalization)
  Sender: FDA-Public Use
  Company Number: US-GILEAD-2012-0053664

PATIENT
  Sex: Female

DRUGS (4)
  1. LETAIRIS [Suspect]
     Indication: COLLAGEN-VASCULAR DISEASE
  2. PREDNISONE TAB [Concomitant]
  3. LETAIRIS [Suspect]
     Indication: PULMONARY ARTERIAL HYPERTENSION
     Dosage: 10 MG, UNK
     Route: 048
     Dates: start: 20110427
  4. LETAIRIS [Suspect]
     Indication: OBESITY

REACTIONS (2)
  - ANAEMIA [None]
  - HAEMORRHAGE [None]
